FAERS Safety Report 22965319 (Version 5)
Quarter: 2023Q4

REPORT INFORMATION
  Report Type: Report from Study
  Country: ZA (occurrence: ZA)
  Receive Date: 20230921
  Receipt Date: 20231220
  Transmission Date: 20240109
  Serious: Yes (Other)
  Sender: FDA-Public Use
  Company Number: ZA-002147023-NVSC2023ZA200223

PATIENT
  Age: 41 Year
  Sex: Female

DRUGS (2)
  1. COSENTYX [Suspect]
     Active Substance: SECUKINUMAB
     Indication: Ankylosing spondylitis
     Dosage: 150 MG, QMO
     Route: 058
     Dates: start: 20191217, end: 20220210
  2. COSENTYX [Suspect]
     Active Substance: SECUKINUMAB
     Dosage: 150 MG, QMO
     Route: 058
     Dates: start: 20230918

REACTIONS (9)
  - Uveitis [Recovering/Resolving]
  - Ankylosing spondylitis [Unknown]
  - Mental fatigue [Recovering/Resolving]
  - Chest pain [Recovering/Resolving]
  - Arthritis [Not Recovered/Not Resolved]
  - Limb injury [Not Recovered/Not Resolved]
  - Back disorder [Not Recovered/Not Resolved]
  - Pain [Unknown]
  - Fatigue [Recovering/Resolving]

NARRATIVE: CASE EVENT DATE: 20230919
